FAERS Safety Report 5043199-9 (Version None)
Quarter: 2006Q3

REPORT INFORMATION
  Report Type: 
  Country: None (occurrence: None)
  Receive Date: 20060703
  Receipt Date: 20060703
  Transmission Date: 20061208
  Serious: Yes (Other)
  Sender: FDA-Public Use
  Company Number: None

PATIENT
  Sex: Female
  Weight: 89.3586 kg

DRUGS (1)
  1. PREVACID [Suspect]
     Indication: GASTROOESOPHAGEAL REFLUX DISEASE
     Dosage: 15 MG QD
     Dates: start: 20050113, end: 20050217

REACTIONS (2)
  - GASTROOESOPHAGEAL REFLUX DISEASE [None]
  - THERAPY NON-RESPONDER [None]
